FAERS Safety Report 8927922 (Version 1)
Quarter: 2012Q4

REPORT INFORMATION
  Report Type: 
  Country: US (occurrence: None)
  Receive Date: 20121126
  Receipt Date: 20121126
  Transmission Date: 20130627
  Serious: Yes (Hospitalization)
  Sender: FDA-Public Use
  Company Number: None

PATIENT
  Sex: Male
  Weight: 8.93 kg

DRUGS (1)
  1. METHOTREXATE [Suspect]
     Dates: end: 20121106

REACTIONS (5)
  - Oxygen saturation decreased [None]
  - Mucosal inflammation [None]
  - Dyspnoea [None]
  - Renal injury [None]
  - Drug clearance decreased [None]
